FAERS Safety Report 11789974 (Version 4)
Quarter: 2016Q1

REPORT INFORMATION
  Report Type: Spontaneous
  Country: US (occurrence: US)
  Receive Date: 20151201
  Receipt Date: 20160301
  Transmission Date: 20160525
  Serious: No
  Sender: FDA-Public Use
  Company Number: US-BAYER-2015-474033

PATIENT
  Age: 61 Year
  Sex: Female

DRUGS (2)
  1. CLIMARA [Suspect]
     Active Substance: ESTRADIOL
     Dosage: 0.037 MG, UNK
  2. CLIMARA [Suspect]
     Active Substance: ESTRADIOL
     Dosage: DAILY DOSE .05 MG/24HR
     Route: 062
     Dates: start: 2015, end: 201511

REACTIONS (2)
  - Application site erythema [Not Recovered/Not Resolved]
  - Application site discolouration [None]

NARRATIVE: CASE EVENT DATE: 20151112
